FAERS Safety Report 24391543 (Version 1)
Quarter: 2024Q4

REPORT INFORMATION
  Report Type: Spontaneous
  Country: US (occurrence: None)
  Receive Date: 20241002
  Receipt Date: 20241002
  Transmission Date: 20250115
  Serious: Yes (Other)
  Sender: Public
  Company Number: None

PATIENT
  Age: 76 Year
  Sex: Female

DRUGS (9)
  1. CAPECITABINE [Suspect]
     Active Substance: CAPECITABINE
     Indication: Appendix cancer
     Dosage: FREQUENCY : TWICE A DAY;?
     Route: 048
     Dates: start: 20240425
  2. VOLTAREN [Concomitant]
     Active Substance: DICLOFENAC SODIUM
  3. DOXYCYCLINE [Concomitant]
     Active Substance: DOXYCYCLINE
  4. BUPROPION [Concomitant]
     Active Substance: BUPROPION
  5. METOPROLOL [Concomitant]
     Active Substance: METOPROLOL
  6. Lisinoporil [Concomitant]
  7. BIOTIN [Concomitant]
     Active Substance: BIOTIN
  8. VITAMIN B12 [Concomitant]
     Active Substance: CYANOCOBALAMIN
  9. VITAMIN D2 [Concomitant]
     Active Substance: ERGOCALCIFEROL

REACTIONS (9)
  - Alopecia [None]
  - Constipation [None]
  - Fatigue [None]
  - Pyrexia [None]
  - Headache [None]
  - Stomatitis [None]
  - Skin exfoliation [None]
  - Gait disturbance [None]
  - Onychalgia [None]
